FAERS Safety Report 14821998 (Version 1)
Quarter: 2018Q2

REPORT INFORMATION
  Report Type: Spontaneous
  Country: US (occurrence: US)
  Receive Date: 20180427
  Receipt Date: 20180427
  Transmission Date: 20180711
  Serious: No
  Sender: FDA-Public Use
  Company Number: US-LEXICON PHARMACEUTICALS, INC-17-1606-01339

PATIENT
  Age: 53 Year
  Sex: Male

DRUGS (3)
  1. OCTREOTIDE LAR [Concomitant]
     Active Substance: OCTREOTIDE
     Indication: DIARRHOEA
     Dates: start: 20170829, end: 20180313
  2. OCTREOTIDE LAR [Concomitant]
     Active Substance: OCTREOTIDE
     Indication: FLUSHING
  3. TELOTRISTAT ETHYL [Suspect]
     Active Substance: TELOTRISTAT ETHYL
     Indication: NEUROENDOCRINE TUMOUR
     Route: 048
     Dates: start: 20171202

REACTIONS (1)
  - Product use in unapproved indication [Not Recovered/Not Resolved]

NARRATIVE: CASE EVENT DATE: 20171202
